FAERS Safety Report 23543669 (Version 3)
Quarter: 2024Q1

REPORT INFORMATION
  Report Type: Spontaneous
  Country: US (occurrence: US)
  Receive Date: 20240220
  Receipt Date: 20240322
  Transmission Date: 20240409
  Serious: Yes (Hospitalization)
  Sender: FDA-Public Use
  Company Number: US-002147023-NVSC2024US032414

PATIENT
  Age: 60 Year
  Sex: Male

DRUGS (5)
  1. TAFINLAR [Suspect]
     Active Substance: DABRAFENIB MESYLATE
     Indication: Thyroid neoplasm
     Dosage: 150 MG, BID
     Route: 048
     Dates: start: 202401
  2. TAFINLAR [Suspect]
     Active Substance: DABRAFENIB MESYLATE
     Dosage: 100 MG, BID (EVERY 12 HOURS)
     Route: 048
     Dates: start: 202401
  3. MEKINIST [Suspect]
     Active Substance: TRAMETINIB DIMETHYL SULFOXIDE
     Indication: Thyroid neoplasm
     Dosage: 2 MG, QD
     Route: 048
     Dates: start: 202401
  4. MEKINIST [Suspect]
     Active Substance: TRAMETINIB DIMETHYL SULFOXIDE
     Dosage: 1.5 MG, QD (ONCE DAILY)
     Route: 048
     Dates: start: 202401
  5. LENVIMA [Concomitant]
     Active Substance: LENVATINIB
     Indication: Thyroid neoplasm
     Dosage: UNK, QD
     Route: 065

REACTIONS (4)
  - Pyrexia [Unknown]
  - Tremor [Unknown]
  - Vomiting [Unknown]
  - Cystitis [Unknown]

NARRATIVE: CASE EVENT DATE: 20240126
